FAERS Safety Report 13784318 (Version 1)
Quarter: 2017Q3

REPORT INFORMATION
  Report Type: Spontaneous
  Country: ZA (occurrence: ZA)
  Receive Date: 20170724
  Receipt Date: 20170724
  Transmission Date: 20171127
  Serious: Yes (Death)
  Sender: FDA-Public Use
  Company Number: PHHY2017ZA108235

PATIENT
  Age: 77 Year
  Sex: Male

DRUGS (1)
  1. SINTRINE [Suspect]
     Active Substance: MONTELUKAST SODIUM
     Indication: ASTHMA
     Dosage: 10 MG, UNK
     Route: 048
     Dates: end: 20170617

REACTIONS (1)
  - Silicosis [Fatal]
